FAERS Safety Report 8228373-2 (Version None)
Quarter: 2012Q1

REPORT INFORMATION
  Report Type: 
  Country: None (occurrence: None)
  Receive Date: 20120322
  Receipt Date: 20110823
  Transmission Date: 20120608
  Serious: Yes (Other)
  Sender: FDA-Public Use
  Company Number: US-BRISTOL-MYERS SQUIBB COMPANY-15994361

PATIENT
  Sex: Male

DRUGS (4)
  1. ALOXI [Concomitant]
     Indication: NAUSEA
  2. TYLENOL [Concomitant]
     Indication: PREMEDICATION
  3. ERBITUX [Suspect]
     Indication: HEAD AND NECK CANCER
     Dosage: SCHEDULED TO RECIEVE 700MG
  4. BENADRYL [Concomitant]
     Indication: PREMEDICATION
     Route: 042

REACTIONS (3)
  - CHILLS [None]
  - HYPOTENSION [None]
  - DYSPNOEA [None]
